FAERS Safety Report 12105689 (Version 1)
Quarter: 2016Q1

REPORT INFORMATION
  Report Type: Spontaneous
  Country: JP (occurrence: JP)
  Receive Date: 20160223
  Receipt Date: 20160223
  Transmission Date: 20160526
  Serious: Yes (Hospitalization, Other)
  Sender: FDA-Public Use
  Company Number: JP-PFIZER INC-2016098736

PATIENT
  Age: 18 Year
  Sex: Female

DRUGS (2)
  1. BUFFERIN [Suspect]
     Active Substance: ASPIRIN
     Dosage: 80 DF, SINGLE
     Route: 048
  2. SOLANAX [Suspect]
     Active Substance: ALPRAZOLAM
     Dosage: 30 DF, SINGLE
     Route: 048

REACTIONS (6)
  - Protein urine [Recovered/Resolved]
  - Pyrexia [Unknown]
  - Overdose [Unknown]
  - Tachypnoea [Unknown]
  - Tachycardia [Unknown]
  - Pleural effusion [Recovered/Resolved]
